FAERS Safety Report 9028665 (Version 1)
Quarter: 2013Q1

REPORT INFORMATION
  Report Type: Spontaneous
  Country: MX (occurrence: MX)
  Receive Date: 20130124
  Receipt Date: 20130124
  Transmission Date: 20140127
  Serious: Yes (Other)
  Sender: FDA-Public Use
  Company Number: PHHY2013MX006347

PATIENT
  Age: 57 Year
  Sex: Male

DRUGS (3)
  1. EXFORGE [Suspect]
     Indication: HYPERTENSION
     Dosage: 1 DF (160 MG VALS/ 10 MG AMLO), DAILY
     Route: 048
  2. ISCOVER [Concomitant]
     Indication: CARDIOVASCULAR DISORDER
     Dosage: 1 DF, DAILY
     Dates: start: 201301
  3. ASPIRINA [Concomitant]
     Indication: INFARCTION
     Dosage: 1 UKN, DAILY
     Dates: start: 201301

REACTIONS (3)
  - Embolism [Recovering/Resolving]
  - Blood pressure increased [Recovering/Resolving]
  - Fatigue [Recovering/Resolving]
